FAERS Safety Report 6722140-4 (Version None)
Quarter: 2010Q2

REPORT INFORMATION
  Report Type: 
  Country: None (occurrence: None)
  Receive Date: 20100510
  Receipt Date: 20100429
  Transmission Date: 20101027
  Serious: Yes (Hospitalization)
  Sender: FDA-Public Use
  Company Number: 1000013627

PATIENT
  Age: 62 Year
  Sex: Female

DRUGS (7)
  1. CITALOPRAM HYDROBROMIDE [Suspect]
     Dosage: 60 MG (20 MG, 3 IN 1 D), ORAL
     Route: 048
  2. LYRICA [Suspect]
     Dosage: 900 MG (900 MG, 1 IN 1 D), ORAL
     Route: 048
  3. ALPRAZOLAM [Suspect]
     Dosage: 1 MG (0.5 MG, 2 IN 1 D), ORAL
     Route: 048
  4. LYSANXIA (TABLETS) [Suspect]
     Dosage: 10 MG (10 MG, 1 IN 1 D), ORAL
     Route: 048
  5. LIORESAL [Suspect]
     Dosage: 60 MG (60 MG, 1 IN 1 D), ORAL
     Route: 048
  6. MEPRONIZINE (TABLETS) [Suspect]
     Dosage: 1 DOSAGE FORMS (1 DOSAGE FORMS, 1 IN 1 D), ORAL
     Route: 048
  7. MORPHINE [Suspect]
     Dosage: ORAL
     Route: 048

REACTIONS (5)
  - BLOOD GLUCOSE INCREASED [None]
  - COMA [None]
  - HYPOXIA [None]
  - MIOSIS [None]
  - TOXIC ENCEPHALOPATHY [None]
